FAERS Safety Report 24561506 (Version 1)
Quarter: 2024Q4

REPORT INFORMATION
  Report Type: Spontaneous
  Country: US (occurrence: None)
  Receive Date: 20241029
  Receipt Date: 20241029
  Transmission Date: 20250115
  Serious: Yes (Hospitalization)
  Sender: Public
  Company Number: None

PATIENT
  Age: 65 Year
  Sex: Male

DRUGS (1)
  1. LUMIZYME [Suspect]
     Active Substance: ALGLUCOSIDASE ALFA
     Indication: Glycogen storage disease type II
     Dosage: FREQUENCY : EVERY OTHER WEEK;?
     Route: 042
     Dates: start: 201610

REACTIONS (1)
  - Pneumothorax [None]

NARRATIVE: CASE EVENT DATE: 20241021
